FAERS Safety Report 20772055 (Version 1)
Quarter: 2022Q2

REPORT INFORMATION
  Report Type: Spontaneous
  Country: FR (occurrence: FR)
  Receive Date: 20220501
  Receipt Date: 20220501
  Transmission Date: 20220721
  Serious: Yes (Hospitalization, Other)
  Sender: FDA-Public Use
  Company Number: None

PATIENT
  Age: 71 Year
  Sex: Male
  Weight: 76.6 kg

DRUGS (2)
  1. OPDIVO [Suspect]
     Active Substance: NIVOLUMAB
     Indication: Clear cell renal cell carcinoma
     Dosage: 3 CURES CYCLICAL, 10 MG/ML, SOLUTION A DILUER POUR PERFUSION
     Route: 065
     Dates: start: 20220208
  2. IPILIMUMAB [Suspect]
     Active Substance: IPILIMUMAB
     Indication: Clear cell renal cell carcinoma
     Dosage: 5 MG/ML, SOLUTION A DILUER POUR PERFUSION, 3 CURES
     Route: 065
     Dates: start: 20220208

REACTIONS (3)
  - Cardiac failure acute [Not Recovered/Not Resolved]
  - Hyperthyroidism [Not Recovered/Not Resolved]
  - Addison^s disease [Not Recovered/Not Resolved]

NARRATIVE: CASE EVENT DATE: 20220404
